FAERS Safety Report 23606124 (Version 1)
Quarter: 2024Q1

REPORT INFORMATION
  Report Type: Spontaneous
  Country: LU (occurrence: LU)
  Receive Date: 20240307
  Receipt Date: 20240307
  Transmission Date: 20240410
  Serious: Yes (Hospitalization, Other)
  Sender: FDA-Public Use
  Company Number: None

PATIENT
  Age: 71 Year
  Sex: Male
  Weight: 88 kg

DRUGS (23)
  1. PACLITAXEL [Suspect]
     Active Substance: PACLITAXEL
     Indication: Lung neoplasm malignant
     Dosage: 107 MG, CYCLIC; 6TH COURSE OF CHEMOTHERAPY
     Route: 042
     Dates: start: 20240124, end: 20240124
  2. PACLITAXEL [Suspect]
     Active Substance: PACLITAXEL
     Dosage: 107 MG, CYCLIC; 5TH COURSE OF CHEMOTHERAPY
     Route: 042
     Dates: start: 20240117, end: 20240117
  3. PACLITAXEL [Suspect]
     Active Substance: PACLITAXEL
     Dosage: UNK
     Dates: start: 20231017
  4. CARBOPLATIN [Suspect]
     Active Substance: CARBOPLATIN
     Indication: Lung neoplasm malignant
     Dosage: 143 MG, CYCLIC; 6TH COURSE OF CHEMOTHERAPY
     Route: 042
     Dates: start: 20240124, end: 20240124
  5. CARBOPLATIN [Suspect]
     Active Substance: CARBOPLATIN
     Dosage: 143 MG, CYCLIC; 5TH COURSE OF CHEMOTHERAPY
     Route: 042
     Dates: start: 20240117, end: 20240117
  6. CARBOPLATIN [Suspect]
     Active Substance: CARBOPLATIN
     Dosage: UNK
     Dates: start: 20231017
  7. ALBUTEROL [Concomitant]
     Active Substance: ALBUTEROL
     Indication: Chronic obstructive pulmonary disease
     Dosage: 1 DF, AS NEEDED
     Route: 055
  8. CIMETIDINE [Concomitant]
     Active Substance: CIMETIDINE
     Indication: Premedication
     Dosage: 200 MG, SINGLE
     Route: 048
     Dates: start: 20240117, end: 20240117
  9. CIMETIDINE [Concomitant]
     Active Substance: CIMETIDINE
     Dosage: 200 MG, SINGLE
     Route: 048
     Dates: start: 20240124, end: 20240124
  10. GLUCOPHAGE [Concomitant]
     Active Substance: METFORMIN HYDROCHLORIDE
     Indication: Diabetes mellitus
     Dosage: 850 MG, 1X/DAY
     Route: 048
  11. ASPIRIN [Concomitant]
     Active Substance: ASPIRIN
     Indication: Chronic obstructive pulmonary disease
     Dosage: 160 MG, 1X/DAY
     Route: 048
  12. BECLOMETHASONE DIPROPIONATE\FORMOTEROL FUMARATE\GLYCOPYRROLATE [Concomitant]
     Active Substance: BECLOMETHASONE DIPROPIONATE\FORMOTEROL FUMARATE\GLYCOPYRROLATE
     Indication: Chronic obstructive pulmonary disease
     Dosage: 1 DF, 2X/DAY
     Route: 055
  13. CLEMASTINE FUMARATE [Concomitant]
     Active Substance: CLEMASTINE FUMARATE
     Indication: Premedication
     Dosage: 2 MG, SINGLE
     Route: 042
     Dates: start: 20240124, end: 20240124
  14. CLEMASTINE FUMARATE [Concomitant]
     Active Substance: CLEMASTINE FUMARATE
     Dosage: 2 MG, SINGLE
     Route: 042
     Dates: start: 20240117, end: 20240117
  15. ACETYLCYSTEINE [Concomitant]
     Active Substance: ACETYLCYSTEINE
     Indication: Chronic obstructive pulmonary disease
     Dosage: 600 MG, 2X/DAY
     Route: 048
  16. ONDANSETRON [Concomitant]
     Active Substance: ONDANSETRON
     Indication: Premedication
     Dosage: 8 MG, SINGLE
     Route: 042
     Dates: start: 20240117, end: 20240117
  17. ONDANSETRON [Concomitant]
     Active Substance: ONDANSETRON
     Dosage: 8 MG, SINGLE
     Route: 042
     Dates: start: 20240124, end: 20240124
  18. ATORVASTATIN CALCIUM\EZETIMIBE [Concomitant]
     Active Substance: ATORVASTATIN CALCIUM\EZETIMIBE
     Indication: Cardiovascular event prophylaxis
     Dosage: 1 DF, 1X/DAY
     Route: 048
  19. JENTADUETO [Concomitant]
     Active Substance: LINAGLIPTIN\METFORMIN HYDROCHLORIDE
     Indication: Diabetes mellitus
     Dosage: 1 DF, 1X/DAY
     Route: 048
  20. TEMESTA [Concomitant]
     Dosage: 2.5 MG, 1X/DAY
     Route: 048
  21. SERETIDE [Concomitant]
     Active Substance: FLUTICASONE PROPIONATE\SALMETEROL XINAFOATE
     Indication: Chronic obstructive pulmonary disease
     Dosage: 1 DF, 3X/DAY
     Route: 055
  22. DEXAMETHASONE [Concomitant]
     Active Substance: DEXAMETHASONE
     Indication: Premedication
     Dosage: 8 MG, SINGLE
     Route: 042
     Dates: start: 20240124, end: 20240124
  23. DEXAMETHASONE [Concomitant]
     Active Substance: DEXAMETHASONE
     Dosage: 8 MG, SINGLE
     Route: 042
     Dates: start: 20240117, end: 20240117

REACTIONS (8)
  - Syncope [Recovered/Resolved]
  - Hypoxia [Unknown]
  - Nervousness [Recovered/Resolved]
  - Paraesthesia [Recovered/Resolved]
  - Cough [Recovered/Resolved]
  - Blood pressure systolic increased [Unknown]
  - Blood pressure diastolic decreased [Unknown]
  - Sinus tachycardia [Unknown]

NARRATIVE: CASE EVENT DATE: 20240117
